FAERS Safety Report 16327578 (Version 1)
Quarter: 2019Q2

REPORT INFORMATION
  Report Type: Spontaneous
  Country: BR (occurrence: BR)
  Receive Date: 20190517
  Receipt Date: 20190517
  Transmission Date: 20190711
  Serious: Yes (Hospitalization)
  Sender: FDA-Public Use
  Company Number: BR-009507513-1905BRA006078

PATIENT
  Age: 38 Year
  Sex: Male

DRUGS (3)
  1. TEMODAL [Suspect]
     Active Substance: TEMOZOLOMIDE
     Indication: GLIOBLASTOMA MULTIFORME
     Dosage: 140 MG/DAY, CONTINUOUS USE
     Route: 048
     Dates: start: 20190110, end: 20190314
  2. TEMODAL [Suspect]
     Active Substance: TEMOZOLOMIDE
     Dosage: 1 TABLET OF 140 MG FOR 5 DAYS AND PAUSING FOR APPROXIMATELY 20 DAYS
     Route: 048
     Dates: start: 2019
  3. TEMODAL [Suspect]
     Active Substance: TEMOZOLOMIDE
     Indication: GLIOBLASTOMA MULTIFORME
     Dosage: 1 TABLET OF 250 MG FOR 5 DAYS AND PAUSING FOR APPROXIMATELY 20 DAYS
     Route: 048
     Dates: start: 2019

REACTIONS (3)
  - Headache [Unknown]
  - Brain operation [Unknown]
  - Incorrect dose administered [Unknown]

NARRATIVE: CASE EVENT DATE: 2019
